FAERS Safety Report 6918151-6 (Version None)
Quarter: 2010Q3

REPORT INFORMATION
  Report Type: 
  Country: None (occurrence: None)
  Receive Date: 20100806
  Receipt Date: 20100728
  Transmission Date: 20110219
  Serious: Yes (Hospitalization)
  Sender: FDA-Public Use
  Company Number: USA/USA/10/0014723

PATIENT
  Age: 46 Year
  Sex: Female
  Weight: 72.5755 kg

DRUGS (3)
  1. SIMVASTATIN [Suspect]
     Indication: BLOOD CHOLESTEROL INCREASED
     Dosage: 1 TABLET EVERY EVENING, PER ORAL
     Route: 048
     Dates: start: 20090601, end: 20100713
  2. DILANTIN 100 MG (PHENYTOIN) [Concomitant]
  3. TOPAMAX [Concomitant]

REACTIONS (5)
  - DRUG ADMINISTRATION ERROR [None]
  - DYSSTASIA [None]
  - FALL [None]
  - MUSCULAR WEAKNESS [None]
  - WEIGHT DECREASED [None]
